FAERS Safety Report 13179571 (Version 1)
Quarter: 2017Q1

REPORT INFORMATION
  Report Type: Spontaneous
  Country: US (occurrence: US)
  Receive Date: 20170202
  Receipt Date: 20170202
  Transmission Date: 20170428
  Serious: Yes (Disabling, Other)
  Sender: FDA-Public Use
  Company Number: None

PATIENT
  Age: 72 Year
  Sex: Female
  Weight: 67.5 kg

DRUGS (13)
  1. OMEPRAZOLE. [Concomitant]
     Active Substance: OMEPRAZOLE
  2. LOSARTIN [Concomitant]
     Active Substance: LOSARTAN
  3. BUPROPRION XL [Concomitant]
     Active Substance: BUPROPION
  4. ATAVORSTATIN [Concomitant]
  5. AMITIZA [Suspect]
     Active Substance: LUBIPROSTONE
     Indication: CONSTIPATION
     Dosage: ?          OTHER STRENGTH:MICROGRAMS;QUANTITY:1 CAPSULE(S);?
     Route: 048
     Dates: start: 20170113, end: 20170124
  6. FUROSEMIDE. [Concomitant]
     Active Substance: FUROSEMIDE
  7. BONIVA [Concomitant]
     Active Substance: IBANDRONATE SODIUM
  8. BIOTIN [Concomitant]
     Active Substance: BIOTIN
  9. VITAMIN D3 [Concomitant]
     Active Substance: CHOLECALCIFEROL
  10. XANAX [Concomitant]
     Active Substance: ALPRAZOLAM
  11. STOOL SOFTENER [Concomitant]
  12. LOVAZA [Concomitant]
     Active Substance: OMEGA-3-ACID ETHYL ESTERS
  13. BABY ASPIRIN [Concomitant]
     Active Substance: ASPIRIN

REACTIONS (5)
  - Abdominal pain [None]
  - Vomiting [None]
  - Dizziness [None]
  - Haematoma [None]
  - Syncope [None]

NARRATIVE: CASE EVENT DATE: 20170124
